FAERS Safety Report 8087975-7 (Version None)
Quarter: 2012Q1

REPORT INFORMATION
  Report Type: 
  Country: None (occurrence: None)
  Receive Date: 20120130
  Receipt Date: 20120119
  Transmission Date: 20120608
  Serious: Yes (Other)
  Sender: FDA-Public Use
  Company Number: NL-ASTRAZENECA-2012SE03822

PATIENT
  Age: 77 Year
  Sex: Female

DRUGS (8)
  1. METOPROLOL TARTRATE [Suspect]
     Indication: HYPERTENSION
     Route: 048
  2. METOPROLOL TARTRATE [Suspect]
     Route: 048
     Dates: start: 20111101
  3. BUMETANIDE [Concomitant]
     Route: 048
  4. LANOXIN [Concomitant]
     Indication: BREAST PAIN
     Route: 048
  5. CHLOORDIAZEPOXIDE DRAGEE [Concomitant]
     Route: 048
  6. PANTOPRAZOLE [Concomitant]
     Route: 048
  7. PAROXETINE [Concomitant]
     Route: 048
  8. FENPROCOUMON [Concomitant]
     Indication: THROMBOSIS
     Route: 048

REACTIONS (4)
  - THERAPEUTIC RESPONSE UNEXPECTED [None]
  - CONFUSIONAL STATE [None]
  - ANXIETY [None]
  - ALOPECIA [None]
